FAERS Safety Report 10209425 (Version 1)
Quarter: 2014Q2

REPORT INFORMATION
  Report Type: Spontaneous
  Country: US (occurrence: US)
  Receive Date: 20140601
  Receipt Date: 20140601
  Transmission Date: 20141212
  Serious: Yes (Other)
  Sender: FDA-Public Use
  Company Number: US-JNJFOC-20140512662

PATIENT
  Age: 71 Year
  Sex: Male
  Weight: 86.18 kg

DRUGS (9)
  1. LISTERINE MOUTHWASH [Suspect]
     Indication: PRODUCT USED FOR UNKNOWN INDICATION
     Route: 048
  2. VITAMIN D [Concomitant]
     Indication: ROUTINE HEALTH MAINTENANCE
     Route: 065
  3. METOPROLOL TARTRATE [Concomitant]
     Indication: CARDIAC DISORDER
     Route: 065
  4. AMLODIPINE [Concomitant]
     Indication: HYPERTENSION
     Dosage: SINCE 4 TO 5 YEARS
     Route: 065
  5. PRAVASTATIN [Concomitant]
     Indication: BLOOD CHOLESTEROL INCREASED
     Route: 065
  6. LISINOPRIL [Concomitant]
     Indication: CARDIAC DISORDER
     Route: 065
  7. OMEPRAZOLE [Concomitant]
     Indication: DYSPEPSIA
     Route: 065
  8. TAMSULOSIN HCL [Concomitant]
     Indication: PROSTATIC DISORDER
     Dosage: SINCE A YEAR
     Route: 065
  9. GLUCOSAMINE / CHONDROITIN [Concomitant]
     Indication: ROUTINE HEALTH MAINTENANCE
     Dosage: GLUCOSAMINE 1500MG/CHONDROITIN 1200 MG
     Route: 065

REACTIONS (1)
  - Prostate cancer [Unknown]
